FAERS Safety Report 7053744-X (Version None)
Quarter: 2010Q4

REPORT INFORMATION
  Report Type: 
  Country: None (occurrence: None)
  Receive Date: 20101020
  Receipt Date: 20101014
  Transmission Date: 20110411
  Serious: Yes (Hospitalization)
  Sender: FDA-Public Use
  Company Number: A0886721A

PATIENT
  Age: 56 Year
  Sex: Male

DRUGS (6)
  1. ADVAIR DISKUS 100/50 [Suspect]
     Indication: ASTHMA
     Dosage: 1PUFF TWICE PER DAY
     Route: 055
     Dates: start: 20090801
  2. ALBUTEROL SULFATE [Concomitant]
  3. IPRATROPIUM BROMIDE [Concomitant]
  4. PROAIR HFA [Concomitant]
  5. RELAFEN [Concomitant]
  6. TEMAZEPAM [Concomitant]

REACTIONS (5)
  - BLINDNESS [None]
  - DRUG ADMINISTRATION ERROR [None]
  - EYE DISORDER [None]
  - NIGHT BLINDNESS [None]
  - VISUAL IMPAIRMENT [None]
